FAERS Safety Report 8963296 (Version 1)
Quarter: 2012Q4

REPORT INFORMATION
  Report Type: 
  Country: CH (occurrence: CH)
  Receive Date: 20121213
  Receipt Date: 20121213
  Transmission Date: 20130627
  Serious: Yes (Life-Threatening, Hospitalization)
  Sender: FDA-Public Use
  Company Number: CH-PFIZER INC-2012315030

PATIENT
  Age: 50 Year
  Sex: Male

DRUGS (11)
  1. CISPLATIN [Suspect]
     Indication: LUNG CANCER
     Dosage: UNK
     Dates: start: 20121010
  2. CISPLATIN [Interacting]
     Dosage: 1 DF, cyclic
     Route: 042
     Dates: start: 20121031, end: 20121102
  3. ETOPOPHOS [Interacting]
     Indication: LUNG CANCER
     Dosage: UNK
     Dates: start: 20121010
  4. ETOPOPHOS [Interacting]
     Dosage: 1 DF, cyclic
     Route: 042
     Dates: start: 20121031, end: 20121102
  5. NOVALGIN [Suspect]
     Indication: PAIN
     Dosage: 1 DF, as needed
     Route: 048
     Dates: start: 20121026, end: 201211
  6. ASPIRIN CARDIO [Concomitant]
     Dosage: 100 mg, 1x/day
     Route: 048
  7. TRIATEC COMP [Concomitant]
     Dosage: 1 DF, 1x/day
     Route: 048
  8. METO ZEROK [Concomitant]
     Dosage: 200 mg, 1x/day
     Route: 048
  9. ATORVASTATIN [Concomitant]
     Dosage: 40 mg, 1x/day
     Route: 048
  10. PANTOZOL [Concomitant]
     Dosage: 40 mg, 1x/day
     Route: 048
  11. DAFALGAN [Concomitant]
     Dosage: 1 g, 1x/day (1 month)
     Route: 048
     Dates: start: 20121026, end: 201211

REACTIONS (4)
  - Drug interaction [Unknown]
  - Agranulocytosis [Recovered/Resolved]
  - Pyrexia [Recovered/Resolved]
  - C-reactive protein increased [Recovering/Resolving]
